FAERS Safety Report 8820612 (Version 1)
Quarter: 2012Q4

REPORT INFORMATION
  Report Type: 
  Country: CN (occurrence: CN)
  Receive Date: 20121002
  Receipt Date: 20121002
  Transmission Date: 20130627
  Serious: Yes (Other)
  Sender: FDA-Public Use
  Company Number: CN-JNJFOC-20120913248

PATIENT
  Age: 2 Year
  Sex: Female

DRUGS (2)
  1. CHILDREN^S MOTRIN [Suspect]
     Route: 048
  2. CHILDREN^S MOTRIN [Suspect]
     Indication: NASOPHARYNGITIS
     Route: 048
     Dates: start: 20090303, end: 20090303

REACTIONS (1)
  - Angioedema [Recovered/Resolved]
